APPROVED DRUG PRODUCT: METHYLPHENIDATE
Active Ingredient: METHYLPHENIDATE
Strength: 17.3MG
Dosage Form/Route: TABLET, ORALLY DISINTEGRATING, EXTENDED RELEASE;ORAL
Application: A210924 | Product #002
Applicant: ACTAVIS ELIZABETH LLC AN INDIRECT WHOLLY OWNED SUB OF TEVA PHARMACEUTICALS USA INC
Approved: Jun 19, 2020 | RLD: No | RS: No | Type: DISCN